FAERS Safety Report 5449618-8 (Version None)
Quarter: 2007Q3

REPORT INFORMATION
  Report Type: 
  Country: None (occurrence: None)
  Receive Date: 20070912
  Receipt Date: 20070905
  Transmission Date: 20080115
  Serious: Yes (Other)
  Sender: FDA-Public Use
  Company Number: PHEH2007US12045

PATIENT
  Sex: Male

DRUGS (2)
  1. TEKTURNA [Suspect]
  2. LIPITOR [Suspect]

REACTIONS (1)
  - HEPATIC ENZYME INCREASED [None]
